FAERS Safety Report 11755255 (Version 1)
Quarter: 2015Q4

REPORT INFORMATION
  Report Type: Spontaneous
  Country: US (occurrence: US)
  Receive Date: 20151119
  Receipt Date: 20151119
  Transmission Date: 20160304
  Serious: Yes (Other)
  Sender: FDA-Public Use
  Company Number: US-BRISTOL-MYERS SQUIBB COMPANY-BMS-2015-081186

PATIENT
  Age: 36 Year
  Sex: Female

DRUGS (1)
  1. IPILIMUMAB [Suspect]
     Active Substance: IPILIMUMAB
     Indication: METASTATIC MALIGNANT MELANOMA
     Dosage: 3 MG/KG, UNK OVER 30 MINUTES
     Route: 065

REACTIONS (3)
  - Diarrhoea haemorrhagic [Unknown]
  - Off label use [Unknown]
  - Infusion related reaction [Recovered/Resolved]
